FAERS Safety Report 10841392 (Version 1)
Quarter: 2015Q1

REPORT INFORMATION
  Report Type: Report from Study
  Country: BR (occurrence: BR)
  Receive Date: 20150220
  Receipt Date: 20150220
  Transmission Date: 20150721
  Serious: Yes (Death, Hospitalization, Other)
  Sender: FDA-Public Use
  Company Number: BR-AMGEN-BRACT2011014656

PATIENT
  Age: 85 Year
  Sex: Male
  Weight: 85 kg

DRUGS (5)
  1. NAPROXEN. [Concomitant]
     Active Substance: NAPROXEN
     Dosage: 500 MG, 1X/DAY
  2. METICORTEN [Concomitant]
     Active Substance: PREDNISONE
     Dosage: 20 MG, 1X/DAY
  3. METHOTREXATE [Concomitant]
     Active Substance: METHOTREXATE
     Dosage: 2.5 MG, 1X/DAY
  4. ETANERCEPT [Suspect]
     Active Substance: ETANERCEPT
     Dosage: 50 MG, QWK
     Route: 065
     Dates: start: 2012, end: 2014
  5. ETANERCEPT [Suspect]
     Active Substance: ETANERCEPT
     Indication: RHEUMATOID ARTHRITIS
     Dosage: 50 MG, 1X/WEEK
     Route: 058
     Dates: start: 20110217

REACTIONS (3)
  - Pneumonia [Unknown]
  - Chest pain [Unknown]
  - Death [Fatal]
